FAERS Safety Report 21754925 (Version 1)
Quarter: 2022Q4

REPORT INFORMATION
  Report Type: Spontaneous
  Country: CA (occurrence: CA)
  Receive Date: 20221220
  Receipt Date: 20221220
  Transmission Date: 20230113
  Serious: Yes (Other)
  Sender: FDA-Public Use
  Company Number: CA-SAMSUNG BIOEPIS-SB-2021-24210

PATIENT
  Age: 31 Year
  Sex: Female
  Weight: 108 kg

DRUGS (4)
  1. INFLIXIMAB [Suspect]
     Active Substance: INFLIXIMAB
     Indication: Crohn^s disease
     Route: 042
  2. DEPO-PROVERA [Concomitant]
     Active Substance: MEDROXYPROGESTERONE ACETATE
     Indication: Product used for unknown indication
     Dosage: UNKNOWN, VIALS, SUSPENSION INTRAMUSCULAR
     Route: 065
  3. MAGNESIUM GLYCINATE [Concomitant]
     Active Substance: MAGNESIUM GLYCINATE
     Indication: Headache
     Route: 065
  4. MONTELUKAST [Concomitant]
     Active Substance: MONTELUKAST SODIUM
     Indication: Product used for unknown indication
     Dosage: UNKNOWN
     Route: 065

REACTIONS (28)
  - Cold sweat [Recovered/Resolved]
  - Asthma [Recovered/Resolved]
  - Burning sensation [Recovered/Resolved]
  - Condition aggravated [Recovered/Resolved]
  - Cough [Recovered/Resolved]
  - Cystitis [Recovered/Resolved]
  - Discomfort [Recovered/Resolved]
  - Dyspnoea [Recovered/Resolved]
  - Feeling cold [Recovered/Resolved]
  - Gastrointestinal sounds abnormal [Recovered/Resolved]
  - Hypersensitivity [Recovered/Resolved]
  - Hypertonic bladder [Recovered/Resolved]
  - Injection site erythema [Recovered/Resolved]
  - Malaise [Recovered/Resolved]
  - Pain [Recovered/Resolved]
  - Skin disorder [Recovered/Resolved]
  - Urinary tract infection [Recovered/Resolved]
  - COVID-19 [Recovered/Resolved]
  - Decreased appetite [Recovered/Resolved]
  - Diarrhoea [Recovered/Resolved]
  - Fatigue [Recovered/Resolved]
  - Haematochezia [Recovered/Resolved]
  - Hyperhidrosis [Recovered/Resolved]
  - Migraine [Recovered/Resolved]
  - Therapeutic response shortened [Recovered/Resolved]
  - Inappropriate schedule of product administration [Recovered/Resolved]
  - Off label use [Recovered/Resolved]
  - Intentional product use issue [Recovered/Resolved]
